FAERS Safety Report 5595542-X (Version None)
Quarter: 2008Q1

REPORT INFORMATION
  Report Type: 
  Country: None (occurrence: None)
  Receive Date: 20080116
  Receipt Date: 20080116
  Transmission Date: 20080703
  Serious: Yes (Other)
  Sender: FDA-Public Use
  Company Number: None

PATIENT
  Age: 77 Year
  Sex: Female
  Weight: 57.6068 kg

DRUGS (1)
  1. PULMICORT FLEXHALER [Suspect]
     Indication: ASTHMA
     Dosage: 180MCG TWICE A DAY INHALER
     Route: 055
     Dates: start: 20071101

REACTIONS (4)
  - APHONIA [None]
  - CHEST DISCOMFORT [None]
  - COUGH [None]
  - DYSPHONIA [None]
